FAERS Safety Report 5000406-6 (Version None)
Quarter: 2006Q2

REPORT INFORMATION
  Report Type: 
  Country: None (occurrence: None)
  Receive Date: 20060511
  Receipt Date: 20050930
  Transmission Date: 20061013
  Serious: Yes (Hospitalization)
  Sender: FDA-Public Use
  Company Number: US-MERCK-0510USA01346

PATIENT
  Age: 42 Year
  Sex: Female
  Weight: 93 kg

DRUGS (2)
  1. VIOXX [Suspect]
     Indication: PAIN
     Route: 048
  2. TYLENOL (CAPLET) [Concomitant]
     Route: 065

REACTIONS (8)
  - CARDIAC DISORDER [None]
  - CARDIOVASCULAR DISORDER [None]
  - CEREBROVASCULAR ACCIDENT [None]
  - LIVER DISORDER [None]
  - MULTI-ORGAN DISORDER [None]
  - MYOCARDIAL INFARCTION [None]
  - PULMONARY EMBOLISM [None]
  - RENAL DISORDER [None]
